FAERS Safety Report 5256288-0 (Version None)
Quarter: 2007Q1

REPORT INFORMATION
  Report Type: 
  Country: None (occurrence: None)
  Receive Date: 20070302
  Receipt Date: 20060707
  Transmission Date: 20070707
  Serious: Yes (Hospitalization)
  Sender: FDA-Public Use
  Company Number: DSA_29397_2007

PATIENT
  Age: 74 Year
  Sex: Female

DRUGS (25)
  1. CARDIZEM CD [Suspect]
     Dosage: 180 MG QD
     Dates: end: 20060413
  2. LYRICA [Suspect]
     Indication: POST HERPETIC NEURALGIA
     Dosage: 75 MG BID
     Dates: start: 20060410, end: 20060412
  3. EZETIMIBE [Suspect]
     Dosage: 10 MG QD
  4. LISINOPRIL [Suspect]
     Dosage: DF
  5. PROCARDIA [Concomitant]
  6. ZESTORETIC [Concomitant]
  7. KETAMINE HCL [Concomitant]
  8. GABAPENTIN [Concomitant]
  9. BACLOFEN [Concomitant]
  10. CLONIDINE [Concomitant]
  11. EMLA [Concomitant]
  12. OXYCONTIN [Concomitant]
  13. ASPIRIN [Concomitant]
  14. LIPITOR [Concomitant]
  15. METFORMIN HCL [Concomitant]
  16. SENOKOT [Concomitant]
  17. VITAMINS [Concomitant]
  18. FLAXSEED OIL [Concomitant]
  19. ALBUTEROL [Concomitant]
  20. BUDESONIDE [Concomitant]
  21. TYLENOL [Concomitant]
  22. NITROSTAT [Concomitant]
  23. GLUCOSAMINE [Concomitant]
  24. CARTIA XT [Concomitant]
  25. DISOPYRAMIDE [Concomitant]

REACTIONS (28)
  - ANAEMIA [None]
  - ATRIOVENTRICULAR BLOCK SECOND DEGREE [None]
  - AZOTAEMIA [None]
  - BLOOD CHLORIDE DECREASED [None]
  - BLOOD CREATININE INCREASED [None]
  - BLOOD GLUCOSE INCREASED [None]
  - BRADYCARDIA [None]
  - BUNDLE BRANCH BLOCK RIGHT [None]
  - CARBON DIOXIDE DECREASED [None]
  - CARDIAC MURMUR [None]
  - CEREBRAL ATROPHY [None]
  - CONFUSIONAL STATE [None]
  - DEHYDRATION [None]
  - DIPLOPIA [None]
  - DYSPHAGIA [None]
  - ERYTHEMA [None]
  - FEELING ABNORMAL [None]
  - FEELING DRUNK [None]
  - HALLUCINATION, VISUAL [None]
  - HYPERKALAEMIA [None]
  - HYPOTENSION [None]
  - MENTAL STATUS CHANGES [None]
  - OEDEMA PERIPHERAL [None]
  - ORAL INTAKE REDUCED [None]
  - RHABDOMYOLYSIS [None]
  - SINUS BRADYCARDIA [None]
  - TREMOR [None]
  - VOMITING [None]
